FAERS Safety Report 12074148 (Version 1)
Quarter: 2016Q1

REPORT INFORMATION
  Report Type: Spontaneous
  Country: US (occurrence: US)
  Receive Date: 20160212
  Receipt Date: 20160212
  Transmission Date: 20160526
  Serious: Yes (Hospitalization)
  Sender: FDA-Public Use
  Company Number: US-ELI_LILLY_AND_COMPANY-US201602001197

PATIENT
  Age: 29 Year
  Sex: Female

DRUGS (1)
  1. ADCIRCA [Suspect]
     Active Substance: TADALAFIL
     Indication: PRODUCT USED FOR UNKNOWN INDICATION
     Dosage: 20 MG, QD
     Route: 065
     Dates: end: 20160129

REACTIONS (4)
  - Dyspnoea [Unknown]
  - Cough [Unknown]
  - Dysgeusia [Unknown]
  - Dizziness [Unknown]

NARRATIVE: CASE EVENT DATE: 20160129
